FAERS Safety Report 14341640 (Version 1)
Quarter: 2018Q1

REPORT INFORMATION
  Report Type: Spontaneous
  Country: US (occurrence: US)
  Receive Date: 20180102
  Receipt Date: 20180102
  Transmission Date: 20180509
  Serious: No
  Sender: FDA-Public Use
  Company Number: US-TEVA-724000ACC

PATIENT
  Age: 64 Year
  Sex: Female

DRUGS (1)
  1. CLONIDINE TABLETS [Suspect]
     Active Substance: CLONIDINE

REACTIONS (1)
  - Drug ineffective [Unknown]
